FAERS Safety Report 13141504 (Version 1)
Quarter: 2017Q1

REPORT INFORMATION
  Report Type: Report from Study
  Country: IE (occurrence: IE)
  Receive Date: 20170123
  Receipt Date: 20170123
  Transmission Date: 20170428
  Serious: Yes (Death, Other)
  Sender: FDA-Public Use
  Company Number: IE-AMGEN-IRLSL2017011082

PATIENT
  Age: 60 Year
  Sex: Male

DRUGS (9)
  1. ASPRIN [Concomitant]
     Active Substance: ASPIRIN
     Dosage: 75 MG, QD
     Route: 050
  2. NOVORAPID [Concomitant]
     Active Substance: INSULIN ASPART
     Dosage: 0 UNIT, BID
     Route: 050
  3. ARANESP [Suspect]
     Active Substance: DARBEPOETIN ALFA
     Indication: CHRONIC KIDNEY DISEASE
     Dosage: 40 MUG, Q2WK
     Route: 058
     Dates: start: 20160401
  4. CLOPIDOGREL [Concomitant]
     Active Substance: CLOPIDOGREL BISULFATE
     Dosage: 75 MG, QD
     Route: 050
  5. BISOP [Concomitant]
     Dosage: 5 MG, QD
     Route: 050
  6. ZOPITAN [Concomitant]
     Dosage: 7.5 MG, QD
     Route: 050
  7. TORVACOL [Concomitant]
     Dosage: 20 MG, QD
     Route: 050
  8. TAMNEXYL [Concomitant]
     Dosage: 400 MG, QD
     Route: 050
  9. NEOMERCAZOLE [Concomitant]
     Active Substance: CARBIMAZOLE
     Dosage: 15 MG, AFTER 28 DAYS
     Route: 050

REACTIONS (1)
  - Death [Fatal]
